FAERS Safety Report 7342586-3 (Version None)
Quarter: 2011Q1

REPORT INFORMATION
  Report Type: 
  Country: None (occurrence: None)
  Receive Date: 20110310
  Receipt Date: 20110121
  Transmission Date: 20110831
  Serious: Yes (Hospitalization, Other)
  Sender: FDA-Public Use
  Company Number: US-BAYER-2011-021082

PATIENT
  Sex: Female
  Weight: 81.633 kg

DRUGS (16)
  1. TRAMADOL [Concomitant]
  2. HYDROCODONE BITARTRATE AND ACETAMINOPHEN [Concomitant]
  3. SUCRALFATE [Concomitant]
  4. HYDROCODONE BITARTRATE AND ACETAMINOPHEN [Concomitant]
  5. PLAN B [Concomitant]
     Dosage: UNK
     Dates: start: 20090728
  6. AMOXICILINA [Concomitant]
  7. YASMIN [Suspect]
     Indication: CONTRACEPTION
     Dosage: UNK
     Dates: start: 19990101, end: 20070101
  8. YASMIN [Suspect]
     Indication: PREMENSTRUAL SYNDROME
  9. OCELLA [Suspect]
     Indication: PREMENSTRUAL SYNDROME
  10. WELLBUTRIN XL [Concomitant]
  11. ABILIFY [Concomitant]
  12. VALIUM [Concomitant]
  13. PLAN B [Concomitant]
     Dosage: UNK
     Dates: start: 20090227
  14. OCELLA [Suspect]
     Indication: CONTRACEPTION
  15. SKELAXIN [Concomitant]
  16. CEPHALEXIN [Concomitant]

REACTIONS (7)
  - ABDOMINAL PAIN UPPER [None]
  - PYREXIA [None]
  - MENTAL DISORDER [None]
  - CHOLECYSTITIS CHRONIC [None]
  - HEPATIC ENZYME INCREASED [None]
  - NAUSEA [None]
  - VOMITING [None]
